FAERS Safety Report 5182842-0 (Version None)
Quarter: 2006Q4

REPORT INFORMATION
  Report Type: 
  Country: None (occurrence: None)
  Receive Date: 20061220
  Receipt Date: 20051121
  Transmission Date: 20070319
  Serious: No
  Sender: FDA-Public Use
  Company Number: US-GLAXOSMITHKLINE-A0583062A

PATIENT
  Age: 41 Year
  Sex: Female

DRUGS (1)
  1. NICODERM CQ [Suspect]
     Dates: start: 20051121, end: 20051121

REACTIONS (4)
  - HYPOVENTILATION [None]
  - MALAISE [None]
  - NAUSEA [None]
  - PALPITATIONS [None]
